FAERS Safety Report 22124734 (Version 3)
Quarter: 2023Q2

REPORT INFORMATION
  Report Type: Spontaneous
  Country: IT (occurrence: IT)
  Receive Date: 20230322
  Receipt Date: 20230523
  Transmission Date: 20230722
  Serious: Yes (Hospitalization, Other)
  Sender: FDA-Public Use
  Company Number: IT-AMERICAN REGENT INC-2023000687

PATIENT
  Age: 74 Year
  Sex: Male
  Weight: 68 kg

DRUGS (3)
  1. FERINJECT [Suspect]
     Active Substance: FERRIC CARBOXYMALTOSE
     Indication: Iron deficiency anaemia
     Dosage: 500 MG (1 AMPOULE) EVERY 7-10
     Dates: start: 20230227, end: 20230227
  2. FERINJECT [Suspect]
     Active Substance: FERRIC CARBOXYMALTOSE
     Dosage: 500 MG (1 AMPOULE) EVERY 7-10
     Dates: start: 2023, end: 2023
  3. FERINJECT [Suspect]
     Active Substance: FERRIC CARBOXYMALTOSE
     Dosage: 500 MG (1 AMPOULE) DILUTED IN 100 CC PHYSIOLOGICAL SOLUTION EVERY 7-10
     Dates: start: 20230309, end: 20230309

REACTIONS (9)
  - Kounis syndrome [Recovering/Resolving]
  - Speech disorder [Recovering/Resolving]
  - Acute myocardial infarction [Recovering/Resolving]
  - Depressed level of consciousness [Recovering/Resolving]
  - Retching [Recovering/Resolving]
  - Angioedema [Recovered/Resolved]
  - Back pain [Recovering/Resolving]
  - Abdominal pain upper [Recovering/Resolving]
  - Hypersensitivity [Recovering/Resolving]

NARRATIVE: CASE EVENT DATE: 20230309
